FAERS Safety Report 19982553 (Version 1)
Quarter: 2021Q4

REPORT INFORMATION
  Report Type: Spontaneous
  Country: DE (occurrence: DE)
  Receive Date: 20211021
  Receipt Date: 20211021
  Transmission Date: 20220303
  Serious: Yes (Other)
  Sender: FDA-Public Use
  Company Number: None

PATIENT
  Age: 28 Year
  Sex: Male

DRUGS (13)
  1. RISPERIDONE [Suspect]
     Active Substance: RISPERIDONE
     Indication: Product used for unknown indication
     Dosage: 2 MILLIGRAM, QD
     Dates: start: 20200820, end: 20200820
  2. RISPERIDONE [Suspect]
     Active Substance: RISPERIDONE
     Dosage: 4 MILLIGRAM, QD
     Dates: start: 20200805, end: 20200810
  3. RISPERIDONE [Suspect]
     Active Substance: RISPERIDONE
     Dosage: 3 MILLIGRAM, QD
     Dates: start: 20200801, end: 20200804
  4. RISPERIDONE [Suspect]
     Active Substance: RISPERIDONE
     Dosage: 3 MILLIGRAM, QD (UMSTELLUNG AUF OLANZAPIN)
     Dates: start: 20200817, end: 20200819
  5. RISPERIDONE [Suspect]
     Active Substance: RISPERIDONE
     Dosage: 5 MILLIGRAM, QD(UAWS EREKTIONSST?RUNGEN UND JUCKREIZ)
     Dates: start: 20200811, end: 20200816
  6. RISPERIDONE [Suspect]
     Active Substance: RISPERIDONE
     Dosage: 2 MILLIGRAM, QD
     Dates: start: 20200729, end: 20200731
  7. OLANZAPINE [Suspect]
     Active Substance: OLANZAPINE
     Indication: Product used for unknown indication
     Dosage: 7.5 MILLIGRAM, QD
     Dates: start: 20200903, end: 20200907
  8. OLANZAPINE [Suspect]
     Active Substance: OLANZAPINE
     Dosage: 10 MILLIGRAM, QD
     Dates: start: 20200824, end: 20200825
  9. OLANZAPINE [Suspect]
     Active Substance: OLANZAPINE
     Dosage: 5 MILLIGRAM, QD
     Dates: start: 20200817, end: 20200817
  10. OLANZAPINE [Suspect]
     Active Substance: OLANZAPINE
     Dosage: 15 MILLIGRAM, QD
     Dates: start: 20200826, end: 20200831
  11. OLANZAPINE [Suspect]
     Active Substance: OLANZAPINE
     Dosage: 10 MILLIGRAM, QD
     Dates: start: 20200901
  12. OLANZAPINE [Suspect]
     Active Substance: OLANZAPINE
     Dosage: 7.5 MILLIGRAM, QD
     Dates: start: 20200818, end: 20200823
  13. OLANZAPINE [Suspect]
     Active Substance: OLANZAPINE
     Dosage: 5 MILLIGRAM, QD
     Dates: start: 20200908

REACTIONS (7)
  - Erectile dysfunction [Unknown]
  - Restless legs syndrome [Recovering/Resolving]
  - Musculoskeletal stiffness [Unknown]
  - Sleep disorder [Unknown]
  - Confusional state [Unknown]
  - Apathy [Unknown]
  - Pruritus [Unknown]

NARRATIVE: CASE EVENT DATE: 20200813
